FAERS Safety Report 19829373 (Version 2)
Quarter: 2021Q3

REPORT INFORMATION
  Report Type: Other
  Country: CA (occurrence: CA)
  Receive Date: 20210914
  Receipt Date: 20210916
  Transmission Date: 20211014
  Serious: Yes (Hospitalization)
  Sender: FDA-Public Use
  Company Number: CA-ROCHE-2906854

PATIENT
  Sex: Female

DRUGS (2)
  1. CIPROFLOXACINE [Concomitant]
     Active Substance: CIPROFLOXACIN
     Dosage: 500 MG TWICE DAILY FOR 7 DAYS
  2. OCREVUS [Suspect]
     Active Substance: OCRELIZUMAB
     Indication: RELAPSING-REMITTING MULTIPLE SCLEROSIS
     Dosage: 300 MG AT DAY 0 AND 14, THEN 600 MG EVERY 6 MONTH
     Route: 042
     Dates: start: 20210330

REACTIONS (1)
  - Pyelonephritis acute [Recovered/Resolved]
